FAERS Safety Report 17646267 (Version 1)
Quarter: 2020Q2

REPORT INFORMATION
  Report Type: Spontaneous
  Country: US (occurrence: US)
  Receive Date: 20200408
  Receipt Date: 20200408
  Transmission Date: 20200713
  Serious: Yes (Death, Hospitalization)
  Sender: FDA-Public Use
  Company Number: US-FARMAPROD-202004-0444

PATIENT
  Age: 56 Year
  Sex: Male

DRUGS (2)
  1. OXERVATE [Suspect]
     Active Substance: CENEGERMIN-BKBJ
     Indication: NEUROTROPHIC KERATOPATHY
     Route: 047
     Dates: start: 20191118, end: 202001
  2. LENVIMA [Concomitant]
     Active Substance: LENVATINIB

REACTIONS (1)
  - Hospitalisation [Fatal]

NARRATIVE: CASE EVENT DATE: 20200329
